FAERS Safety Report 14347970 (Version 1)
Quarter: 2018Q1

REPORT INFORMATION
  Report Type: Spontaneous
  Country: DE (occurrence: DE)
  Receive Date: 20180103
  Receipt Date: 20180103
  Transmission Date: 20180509
  Serious: Yes (Other)
  Sender: FDA-Public Use
  Company Number: PHHY2017DE196957

PATIENT
  Age: 68 Year
  Sex: Female
  Weight: 50 kg

DRUGS (17)
  1. CARBOPLATIN. [Concomitant]
     Active Substance: CARBOPLATIN
     Indication: NON-SMALL CELL LUNG CANCER
     Dosage: 6 CYCLES
     Route: 065
     Dates: end: 200711
  2. FEMARA [Suspect]
     Active Substance: LETROZOLE
     Indication: HORMONE THERAPY
     Dosage: UNK
     Route: 065
     Dates: start: 2007, end: 2012
  3. CARBOPLATIN. [Concomitant]
     Active Substance: CARBOPLATIN
     Dosage: UNK
     Route: 065
     Dates: end: 201005
  4. XGEVA [Concomitant]
     Active Substance: DENOSUMAB
     Indication: PROPHYLAXIS
     Dosage: UNK
     Route: 065
     Dates: start: 20120203
  5. DOCETAXEL. [Concomitant]
     Active Substance: DOCETAXEL
     Indication: NON-SMALL CELL LUNG CANCER
     Dosage: 2 CYCLES
     Route: 065
     Dates: start: 201103, end: 201104
  6. PEMETREXED. [Concomitant]
     Active Substance: PEMETREXED
     Dosage: 5 CYCLES
     Route: 065
     Dates: end: 20080917
  7. GEMCITABINE [Concomitant]
     Active Substance: GEMCITABINE\GEMCITABINE HYDROCHLORIDE
     Dosage: 2 CYCLES
     Route: 065
     Dates: start: 201103, end: 201104
  8. IXABEPILONE [Concomitant]
     Active Substance: IXABEPILONE
     Indication: NON-SMALL CELL LUNG CANCER
     Dosage: 1 CYCLE
     Route: 065
     Dates: start: 201004
  9. XALKORI [Concomitant]
     Active Substance: CRIZOTINIB
     Dosage: 250 MG, BID
     Route: 048
     Dates: end: 201407
  10. BEVACIZUMAB. [Concomitant]
     Active Substance: BEVACIZUMAB
     Dosage: UNK (4 CYCLES)
     Route: 065
     Dates: start: 200910, end: 200911
  11. PAMIDRONATE [Concomitant]
     Active Substance: PAMIDRONATE DISODIUM
     Indication: NON-SMALL CELL LUNG CANCER
     Dosage: UNK
     Route: 065
     Dates: start: 200910, end: 201108
  12. GEMCITABINE [Concomitant]
     Active Substance: GEMCITABINE\GEMCITABINE HYDROCHLORIDE
     Indication: NON-SMALL CELL LUNG CANCER
     Dosage: 4 CYCLES
     Route: 065
     Dates: start: 200910, end: 200911
  13. XALKORI [Concomitant]
     Active Substance: CRIZOTINIB
     Indication: NON-SMALL CELL LUNG CANCER
     Dosage: 250 MG, BID
     Route: 048
     Dates: start: 20110608
  14. PEMETREXED. [Concomitant]
     Active Substance: PEMETREXED
     Indication: PRODUCT USED FOR UNKNOWN INDICATION
     Dosage: 3 CYCLES
     Route: 065
     Dates: start: 200804
  15. BEVACIZUMAB. [Concomitant]
     Active Substance: BEVACIZUMAB
     Indication: NON-SMALL CELL LUNG CANCER
     Dosage: 3 CYCLES
     Route: 065
     Dates: start: 200804
  16. TARCEVA [Concomitant]
     Active Substance: ERLOTINIB HYDROCHLORIDE
     Indication: NON-SMALL CELL LUNG CANCER
     Route: 065
  17. PACLITAXEL. [Concomitant]
     Active Substance: PACLITAXEL
     Indication: NON-SMALL CELL LUNG CANCER
     Dosage: 6 CYCLES
     Route: 065
     Dates: end: 200711

REACTIONS (16)
  - Malignant neoplasm progression [Unknown]
  - Metastases to central nervous system [Unknown]
  - Metastases to liver [Unknown]
  - Lung infiltration [Unknown]
  - Dyspnoea [Unknown]
  - Metastases to bone [Unknown]
  - Tumour flare [Unknown]
  - Hyperproteinaemia [Recovering/Resolving]
  - Depressive symptom [Recovering/Resolving]
  - Weight decreased [Recovering/Resolving]
  - Nausea [Unknown]
  - Vomiting [Unknown]
  - Hypergammaglobulinaemia [Recovered/Resolved]
  - Pleural effusion [Unknown]
  - Dysphagia [Unknown]
  - Bone pain [Unknown]

NARRATIVE: CASE EVENT DATE: 200909
